FAERS Safety Report 8852315 (Version 1)
Quarter: 2012Q4

REPORT INFORMATION
  Report Type: 
  Country: US (occurrence: US)
  Receive Date: 20121022
  Receipt Date: 20121022
  Transmission Date: 20130627
  Serious: No
  Sender: FDA-Public Use
  Company Number: US-ASTRAZENECA-2012SE76118

PATIENT
  Age: 54 Year
  Sex: Female

DRUGS (3)
  1. CRESTOR [Suspect]
     Route: 048
  2. LIPITOR [Suspect]
     Route: 065
  3. SIMVASTATIN [Suspect]
     Route: 065

REACTIONS (2)
  - Gait disturbance [Unknown]
  - Muscle spasms [Unknown]
